FAERS Safety Report 24223168 (Version 1)
Quarter: 2024Q3

REPORT INFORMATION
  Report Type: Spontaneous
  Country: US (occurrence: None)
  Receive Date: 20240816
  Receipt Date: 20240816
  Transmission Date: 20241016
  Serious: Yes (Death)
  Sender: Public
  Company Number: None

PATIENT
  Age: 84 Year
  Sex: Male

DRUGS (1)
  1. ZARXIO [Suspect]
     Active Substance: FILGRASTIM-SNDZ
     Indication: Lung neoplasm malignant
     Dosage: OTHER QUANTITY : 1 SYRINGE;?FREQUENCY : WEEKLY;?
     Dates: start: 20230524, end: 20240806

REACTIONS (1)
  - Death [None]

NARRATIVE: CASE EVENT DATE: 20240809
